FAERS Safety Report 21764822 (Version 2)
Quarter: 2024Q2

REPORT INFORMATION
  Report Type: Report from Study
  Country: PR (occurrence: PR)
  Receive Date: 20221222
  Receipt Date: 20240404
  Transmission Date: 20240716
  Serious: No
  Sender: FDA-Public Use
  Company Number: PR-ABBVIE-21K-131-3853808-00

PATIENT
  Age: 40 Year
  Sex: Female
  Weight: 64.41 kg

DRUGS (9)
  1. HUMIRA [Suspect]
     Active Substance: ADALIMUMAB
     Indication: Rheumatoid arthritis
     Route: 058
     Dates: start: 201910
  2. HUMIRA [Suspect]
     Active Substance: ADALIMUMAB
     Route: 058
  3. ELASOMERAN [Suspect]
     Active Substance: ELASOMERAN
     Indication: COVID-19 immunisation
     Dosage: FIRST DOSE
     Route: 030
     Dates: start: 20210312, end: 20210312
  4. ELASOMERAN [Suspect]
     Active Substance: ELASOMERAN
     Indication: COVID-19 immunisation
     Dosage: SECOND DOSE
     Route: 030
     Dates: start: 20210406, end: 20210406
  5. ELASOMERAN [Suspect]
     Active Substance: ELASOMERAN
     Indication: COVID-19 immunisation
     Dosage: THIRD DOSE
     Route: 030
     Dates: start: 20211109, end: 20211109
  6. MOBIC [Concomitant]
     Active Substance: MELOXICAM
     Indication: Pain
     Route: 048
  7. AIMOVIG [Concomitant]
     Active Substance: ERENUMAB-AOOE
     Indication: Headache
     Dosage: FORM STRENGTH: 140 MILLIGRAM
     Route: 050
     Dates: start: 202010
  8. SULFASALAZINE [Concomitant]
     Active Substance: SULFASALAZINE
     Indication: Pain
     Route: 048
  9. ELAVIL [Concomitant]
     Active Substance: AMITRIPTYLINE HYDROCHLORIDE
     Indication: Fibromyalgia
     Dosage: STARTED MORE THAN SIX MONTH AGO?FORM STRENGTH: 10 MILLIGRAM
     Route: 048

REACTIONS (13)
  - Finger deformity [Not Recovered/Not Resolved]
  - Weight increased [Unknown]
  - Dizziness [Recovering/Resolving]
  - Hepatic steatosis [Recovering/Resolving]
  - Fibromyalgia [Not Recovered/Not Resolved]
  - Bone pain [Not Recovered/Not Resolved]
  - Immunisation reaction [Recovering/Resolving]
  - Rheumatoid arthritis [Not Recovered/Not Resolved]
  - Peripheral swelling [Unknown]
  - Pain [Recovering/Resolving]
  - Pain [Not Recovered/Not Resolved]
  - Abdominal pain upper [Recovering/Resolving]
  - Headache [Unknown]

NARRATIVE: CASE EVENT DATE: 20200101
